FAERS Safety Report 8375558-0 (Version None)
Quarter: 2012Q1

REPORT INFORMATION
  Report Type: 
  Country: None (occurrence: None)
  Receive Date: 20120323
  Receipt Date: 20111214
  Transmission Date: 20120608
  Serious: Yes (Disabling, Other)
  Sender: FDA-Public Use
  Company Number: 163-21880-11020413

PATIENT
  Age: 62 Year
  Sex: Female

DRUGS (3)
  1. MIRALAX [Concomitant]
  2. REVLIMID [Suspect]
     Indication: MYELODYSPLASTIC SYNDROME
     Dosage: 10 MG, DAILY FOR 21 DAYS OF 28 DAYS, PO
     Route: 048
     Dates: start: 20101215, end: 20110208
  3. VIDAZA [Concomitant]

REACTIONS (3)
  - NO THERAPEUTIC RESPONSE [None]
  - CONSTIPATION [None]
  - ANAEMIA [None]
